FAERS Safety Report 24567728 (Version 1)
Quarter: 2024Q4

REPORT INFORMATION
  Report Type: Spontaneous
  Country: US (occurrence: US)
  Receive Date: 20241031
  Receipt Date: 20241031
  Transmission Date: 20250114
  Serious: Yes (Death, Hospitalization)
  Sender: AMGEN
  Company Number: US-AMGEN-USASP2024211415

PATIENT
  Age: 64 Year
  Sex: Male

DRUGS (2)
  1. BEVACIZUMAB [Suspect]
     Active Substance: BEVACIZUMAB
     Indication: Gastrointestinal lymphoma
     Dosage: UNK
     Route: 065
  2. DCF [Concomitant]
     Indication: Gastrointestinal lymphoma
     Dosage: UNK
     Route: 065

REACTIONS (3)
  - Extranodal marginal zone B-cell lymphoma (MALT type) [Fatal]
  - Metastases to central nervous system [Fatal]
  - Off label use [Unknown]
